FAERS Safety Report 25239774 (Version 4)
Quarter: 2025Q2

REPORT INFORMATION
  Report Type: Spontaneous
  Country: DK (occurrence: DK)
  Receive Date: 20250425
  Receipt Date: 20250618
  Transmission Date: 20250717
  Serious: Yes (Hospitalization)
  Sender: SANDOZ
  Company Number: DK-ROCHE-10000241608

PATIENT
  Age: 16 Year
  Sex: Male
  Weight: 96.6 kg

DRUGS (52)
  1. CARBOPLATIN [Suspect]
     Active Substance: CARBOPLATIN
     Indication: B-cell lymphoma recurrent
     Route: 042
     Dates: start: 20250116
  2. CYTARABINE [Suspect]
     Active Substance: CYTARABINE
     Indication: B-cell lymphoma recurrent
     Route: 037
     Dates: start: 20250214
  3. CYTARABINE [Suspect]
     Active Substance: CYTARABINE
     Route: 037
     Dates: start: 20250109
  4. ETOPOSIDE [Suspect]
     Active Substance: ETOPOSIDE
     Indication: B-cell lymphoma recurrent
     Route: 042
     Dates: start: 20250116
  5. GLOFITAMAB [Suspect]
     Active Substance: GLOFITAMAB
     Indication: B-cell lymphoma recurrent
     Route: 042
     Dates: start: 20250122
  6. GLOFITAMAB [Suspect]
     Active Substance: GLOFITAMAB
     Route: 042
  7. HYDROCORTISONE [Suspect]
     Active Substance: HYDROCORTISONE
     Indication: B-cell lymphoma recurrent
     Route: 037
     Dates: start: 20250214
  8. HYDROCORTISONE [Suspect]
     Active Substance: HYDROCORTISONE
     Route: 037
     Dates: start: 20250109
  9. IFOSFAMIDE [Suspect]
     Active Substance: IFOSFAMIDE
     Indication: B-cell lymphoma recurrent
     Route: 042
     Dates: start: 20250116
  10. LENOGRASTIM [Suspect]
     Active Substance: LENOGRASTIM
     Indication: B-cell lymphoma
     Route: 058
     Dates: start: 20250219
  11. METHOTREXATE [Suspect]
     Active Substance: METHOTREXATE
     Route: 037
     Dates: start: 20250109
  12. METHOTREXATE [Suspect]
     Active Substance: METHOTREXATE
     Indication: B-cell lymphoma recurrent
     Route: 037
     Dates: start: 20250214
  13. MESNA [Suspect]
     Active Substance: MESNA
     Indication: B-cell lymphoma recurrent
     Route: 042
     Dates: start: 20250116
  14. OBINUTUZUMAB [Suspect]
     Active Substance: OBINUTUZUMAB
     Indication: B-cell lymphoma recurrent
     Route: 042
     Dates: start: 20250114
  15. OBINUTUZUMAB [Suspect]
     Active Substance: OBINUTUZUMAB
     Route: 042
  16. RITUXIMAB [Suspect]
     Active Substance: RITUXIMAB
     Indication: B-cell lymphoma recurrent
     Route: 042
     Dates: start: 20250214
  17. RITUXIMAB [Suspect]
     Active Substance: RITUXIMAB
     Route: 042
  18. TOCILIZUMAB [Suspect]
     Active Substance: TOCILIZUMAB
     Indication: B-cell lymphoma recurrent
     Route: 042
     Dates: start: 20250123
  19. TOCILIZUMAB [Suspect]
     Active Substance: TOCILIZUMAB
     Route: 042
  20. COVID-19 vaccine [Concomitant]
     Indication: Product used for unknown indication
     Route: 065
     Dates: start: 202311
  21. Calcium chloride;Sodium chloride;Sodium phosphate dibasic;Sodium phosp [Concomitant]
     Indication: Mucosal inflammation
     Route: 048
     Dates: start: 20250321
  22. CASPOFUNGIN [Concomitant]
     Active Substance: CASPOFUNGIN
     Indication: Product used for unknown indication
     Route: 042
     Dates: start: 20250112
  23. Cinchocaine;Esculoside;Framycetin;Hydrocortisone [Concomitant]
     Indication: Pruritus genital
     Route: 054
     Dates: start: 20250223
  24. CIPROFLOXACIN [Concomitant]
     Active Substance: CIPROFLOXACIN
     Indication: Infection
     Route: 048
     Dates: start: 20250228, end: 20250307
  25. CLEMASTINE [Concomitant]
     Active Substance: CLEMASTINE
     Indication: Product used for unknown indication
     Route: 042
     Dates: start: 20250228, end: 20250318
  26. CLEMASTINE [Concomitant]
     Active Substance: CLEMASTINE
     Route: 042
     Dates: start: 20250310, end: 20250318
  27. CLEMASTINE [Concomitant]
     Active Substance: CLEMASTINE
     Route: 042
     Dates: start: 20250228, end: 20250307
  28. CLONAZEPAM [Concomitant]
     Active Substance: CLONAZEPAM
     Indication: Product used for unknown indication
     Route: 048
     Dates: start: 20250314, end: 20250318
  29. DEXAMETHASONE SODIUM PHOSPHATE [Concomitant]
     Active Substance: DEXAMETHASONE SODIUM PHOSPHATE
     Indication: Anaphylactic reaction
     Route: 042
     Dates: start: 20250114
  30. Esomeprazol Accord [Concomitant]
     Indication: Ulcer
     Route: 048
     Dates: start: 20250114
  31. FILGRASTIM [Concomitant]
     Active Substance: FILGRASTIM
     Route: 058
     Dates: start: 20250228, end: 20250323
  32. FILGRASTIM [Concomitant]
     Active Substance: FILGRASTIM
     Indication: Product used for unknown indication
     Route: 058
     Dates: start: 20250202, end: 20250323
  33. FILGRASTIM [Concomitant]
     Active Substance: FILGRASTIM
     Route: 058
     Dates: start: 20250202, end: 20250205
  34. FUROSEMIDE [Concomitant]
     Active Substance: FUROSEMIDE
     Indication: Product used for unknown indication
     Route: 042
     Dates: start: 20250315, end: 20250318
  35. SODIUM PICOSULFATE [Concomitant]
     Active Substance: SODIUM PICOSULFATE
     Indication: Constipation
     Route: 048
  36. POLYETHYLENE GLYCOLS [Concomitant]
     Active Substance: POLYETHYLENE GLYCOLS
     Indication: Constipation
     Route: 048
     Dates: start: 20250227
  37. MEROPENEM [Concomitant]
     Active Substance: MEROPENEM
     Indication: Infection
     Route: 042
     Dates: start: 20250228, end: 20250301
  38. METHYLENE BLUE [Concomitant]
     Active Substance: METHYLENE BLUE
     Indication: Product used for unknown indication
     Route: 042
     Dates: start: 20250315, end: 20250318
  39. Metopimazina [Concomitant]
     Indication: Nausea
     Route: 048
     Dates: start: 20250114
  40. ONDANSETRON [Concomitant]
     Active Substance: ONDANSETRON
     Indication: Nausea
     Route: 048
     Dates: start: 20250224
  41. OXYCODONE HYDROCHLORIDE [Concomitant]
     Active Substance: OXYCODONE HYDROCHLORIDE
     Indication: Pain
     Route: 048
     Dates: start: 20250228, end: 20250307
  42. OXYCODONE HYDROCHLORIDE [Concomitant]
     Active Substance: OXYCODONE HYDROCHLORIDE
     Route: 048
     Dates: start: 20250322
  43. PALONOSETRON [Concomitant]
     Active Substance: PALONOSETRON
     Indication: Nausea
     Route: 042
     Dates: start: 20250315, end: 20250318
  44. ACETAMINOPHEN [Concomitant]
     Active Substance: ACETAMINOPHEN
     Indication: Pain
     Route: 048
     Dates: start: 20250112
  45. ACETAMINOPHEN [Concomitant]
     Active Substance: ACETAMINOPHEN
     Indication: Neutropenia
  46. PIPERACILLIN SODIUM\TAZOBACTAM SODIUM [Concomitant]
     Active Substance: PIPERACILLIN SODIUM\TAZOBACTAM SODIUM
     Route: 042
     Dates: start: 20250321
  47. PIPERACILLIN SODIUM\TAZOBACTAM SODIUM [Concomitant]
     Active Substance: PIPERACILLIN SODIUM\TAZOBACTAM SODIUM
     Indication: Infection
     Route: 042
     Dates: start: 20250301, end: 20250307
  48. POSACONAZOLE [Concomitant]
     Active Substance: POSACONAZOLE
     Indication: Product used for unknown indication
     Route: 048
  49. PROCTOSEDYL [Concomitant]
     Active Substance: DIBUCAINE HYDROCHLORIDE\HYDROCORTISONE
     Indication: Perineal pain
     Route: 054
     Dates: start: 20250223, end: 20250307
  50. PROCTOSEDYL [Concomitant]
     Active Substance: DIBUCAINE HYDROCHLORIDE\HYDROCORTISONE
     Route: 054
     Dates: start: 20250322
  51. Trimetoprima sulfametoxazol [Concomitant]
     Indication: Product used for unknown indication
     Route: 048
  52. VANCOMYCIN [Concomitant]
     Active Substance: VANCOMYCIN
     Indication: Infection
     Route: 042
     Dates: start: 20250302, end: 20250307

REACTIONS (1)
  - Febrile neutropenia [Recovering/Resolving]

NARRATIVE: CASE EVENT DATE: 20250321
